FAERS Safety Report 4368515-2 (Version None)
Quarter: 2004Q2

REPORT INFORMATION
  Report Type: 
  Country: None (occurrence: None)
  Receive Date: 20040602
  Receipt Date: 20040209
  Transmission Date: 20050107
  Serious: No
  Sender: FDA-Public Use
  Company Number: US-GLAXOSMITHKLINE-A0497229A

PATIENT
  Age: 8 Month
  Sex: Male

DRUGS (2)
  1. AUGMENTIN [Suspect]
     Indication: EAR INFECTION
     Dosage: 1TSP TWICE PER DAY
     Route: 048
     Dates: start: 20040208, end: 20040208
  2. TRIAMINIC COUGH SYRUP [Concomitant]

REACTIONS (2)
  - DIARRHOEA [None]
  - VOMITING [None]
